FAERS Safety Report 5649266-0 (Version None)
Quarter: 2008Q1

REPORT INFORMATION
  Report Type: 
  Country: None (occurrence: None)
  Receive Date: 20080304
  Receipt Date: 20071206
  Transmission Date: 20080703
  Serious: No
  Sender: FDA-Public Use
  Company Number: US-BAYER-200715857NA

PATIENT
  Age: 51 Year
  Sex: Female
  Weight: 86 kg

DRUGS (4)
  1. MAGNEVIST [Suspect]
     Indication: NUCLEAR MAGNETIC RESONANCE IMAGING BRAIN
     Dosage: TOTAL DAILY DOSE: 15 ML  UNIT DOSE: 15 ML
     Route: 042
     Dates: start: 20071205, end: 20071205
  2. ZOLOFT [Concomitant]
  3. METHOTREXATE [Concomitant]
  4. STEROIDS [Concomitant]

REACTIONS (2)
  - PRURITUS [None]
  - URTICARIA [None]
